FAERS Safety Report 23538821 (Version 1)
Quarter: 2024Q1

REPORT INFORMATION
  Report Type: Spontaneous
  Country: IT (occurrence: IT)
  Receive Date: 20240219
  Receipt Date: 20240219
  Transmission Date: 20240410
  Serious: Yes (Life-Threatening, Other)
  Sender: FDA-Public Use
  Company Number: None

PATIENT
  Sex: Female

DRUGS (1)
  1. ACETAMINOPHEN [Suspect]
     Active Substance: ACETAMINOPHEN
     Indication: Analgesic therapy
     Dosage: 3000 MG, QD
     Route: 064

REACTIONS (9)
  - Patent ductus arteriosus [Unknown]
  - Pulmonary artery stenosis [Unknown]
  - Right ventricular dysfunction [Unknown]
  - Foetal exposure during pregnancy [Unknown]
  - Neonatal respiratory distress syndrome [Recovered/Resolved]
  - Food interaction [Unknown]
  - Drug interaction [Unknown]
  - Cardiomyopathy neonatal [Recovering/Resolving]
  - Aspartate aminotransferase increased [Unknown]
